FAERS Safety Report 6381581-8 (Version None)
Quarter: 2009Q3

REPORT INFORMATION
  Report Type: 
  Country: None (occurrence: None)
  Receive Date: 20090925
  Receipt Date: 20090918
  Transmission Date: 20100115
  Serious: Yes (Death)
  Sender: FDA-Public Use
  Company Number: POMP-1000689

PATIENT
  Age: 8 Month
  Sex: Female
  Weight: 6.3 kg

DRUGS (2)
  1. MYOZYME [Suspect]
     Indication: GLYCOGEN STORAGE DISEASE TYPE II
     Dosage: 20 MG/KG, Q2W, INTRAVENOUS
     Route: 042
     Dates: start: 20090605, end: 20090729
  2. CARNITINE (CARNITINE) [Concomitant]

REACTIONS (1)
  - CARDIAC ARREST [None]
